FAERS Safety Report 23839556 (Version 1)
Quarter: 2024Q2

REPORT INFORMATION
  Report Type: Spontaneous
  Country: AR (occurrence: None)
  Receive Date: 20240510
  Receipt Date: 20240510
  Transmission Date: 20240716
  Serious: Yes (Disabling, Other)
  Sender: FDA-Public Use
  Company Number: AR-Orion Corporation ORION PHARMA-ENTC2024-0048

PATIENT
  Age: 84 Year
  Sex: Male

DRUGS (1)
  1. STALEVO [Suspect]
     Active Substance: CARBIDOPA\ENTACAPONE\LEVODOPA
     Indication: Parkinson^s disease

REACTIONS (3)
  - Disability [Recovering/Resolving]
  - Gait disturbance [Recovering/Resolving]
  - Walking aid user [Recovering/Resolving]
